FAERS Safety Report 14984636 (Version 1)
Quarter: 2018Q2

REPORT INFORMATION
  Report Type: Spontaneous
  Country: CN (occurrence: CN)
  Receive Date: 20180607
  Receipt Date: 20180607
  Transmission Date: 20180711
  Serious: Yes (Other)
  Sender: FDA-Public Use
  Company Number: CN-JNJFOC-20180539900

PATIENT

DRUGS (2)
  1. METHOTREXATE. [Concomitant]
     Active Substance: METHOTREXATE
     Indication: RHEUMATOID ARTHRITIS
     Dosage: 7.5 TO 20 MG DOSE RANGE
     Route: 065
  2. REMICADE [Suspect]
     Active Substance: INFLIXIMAB
     Indication: RHEUMATOID ARTHRITIS
     Dosage: WEEK 0, 2, 6 AND 14
     Route: 042

REACTIONS (21)
  - Pyrexia [Unknown]
  - Renal impairment [Unknown]
  - Nausea [Unknown]
  - Hyperhidrosis [Unknown]
  - Urticaria [Unknown]
  - White blood cell count decreased [Unknown]
  - Pneumonia [Unknown]
  - Rash [Unknown]
  - Pruritus [Unknown]
  - Platelet count decreased [Unknown]
  - Urinary tract infection [Unknown]
  - Pharyngitis [Unknown]
  - Hyperbilirubinaemia [Unknown]
  - Upper respiratory tract infection [Unknown]
  - Infusion related reaction [Unknown]
  - Palpitations [Unknown]
  - Eczema [Unknown]
  - Lymph node tuberculosis [Unknown]
  - Abdominal pain [Unknown]
  - Liver function test abnormal [Unknown]
  - Hepatic enzyme increased [Unknown]
